FAERS Safety Report 15083297 (Version 1)
Quarter: 2018Q2

REPORT INFORMATION
  Report Type: Spontaneous
  Country: US (occurrence: US)
  Receive Date: 20180628
  Receipt Date: 20180628
  Transmission Date: 20180711
  Serious: Yes (Other)
  Sender: FDA-Public Use
  Company Number: US-SA-2018SA164821

PATIENT
  Sex: Female

DRUGS (2)
  1. TERIFLUNOMIDE [Suspect]
     Active Substance: TERIFLUNOMIDE
     Dosage: 14 MG, QD
     Route: 048
  2. TERIFLUNOMIDE [Suspect]
     Active Substance: TERIFLUNOMIDE
     Dosage: 7 MG, QD
     Route: 048

REACTIONS (1)
  - Anal incontinence [Not Recovered/Not Resolved]
